FAERS Safety Report 8786941 (Version 2)
Quarter: 2012Q4

REPORT INFORMATION
  Report Type: 
  Country: US (occurrence: US)
  Receive Date: 20120914
  Receipt Date: 20120914
  Transmission Date: 20130627
  Serious: Yes (Hospitalization)
  Sender: FDA-Public Use
  Company Number: PHEH2012US015843

PATIENT
  Age: 51 Year
  Sex: Female
  Weight: 109.3 kg

DRUGS (8)
  1. MYFORTIC [Suspect]
     Indication: HEART TRANSPLANT
     Dosage: 360 mg, BID
     Route: 048
     Dates: start: 20101025
  2. NEORAL [Concomitant]
  3. CICLOSPORIN [Concomitant]
     Indication: ORGAN TRANSPLANT
     Route: 048
     Dates: start: 20110505
  4. PREDNISONE [Concomitant]
     Indication: ORGAN TRANSPLANT
     Dosage: 1 DF, QD
     Route: 048
     Dates: start: 20110505
  5. PRAVASTATIN [Concomitant]
     Indication: HYPERLIPIDAEMIA
     Dosage: 1 DF, QD
     Route: 048
     Dates: start: 20090303
  6. LISINOPRIL [Concomitant]
     Indication: HYPERTENSION
     Dosage: 1 DF, QD
     Route: 048
     Dates: start: 20020502
  7. FERROUS SULPHATE [Concomitant]
     Indication: ANAEMIA
     Dosage: 1 DF, TID
     Route: 048
     Dates: start: 20120908
  8. INSULIN [Concomitant]
     Indication: DIABETES MELLITUS
     Dosage: 1 DF, BID
     Route: 058

REACTIONS (5)
  - Dysfunctional uterine bleeding [Unknown]
  - Vaginal haemorrhage [Recovered/Resolved]
  - White blood cell count increased [Unknown]
  - Haemoglobin decreased [Unknown]
  - Haematocrit decreased [None]
